FAERS Safety Report 8632745 (Version 3)
Quarter: 2013Q1

REPORT INFORMATION
  Report Type: Spontaneous
  Country: US (occurrence: None)
  Receive Date: 20120615
  Receipt Date: 20121005
  Transmission Date: 20140127
  Serious: Yes (Hospitalization, Other)
  Sender: FDA-Public Use
  Company Number: 1206-297

PATIENT
  Age: 65 Year
  Sex: Male

DRUGS (7)
  1. EYLEA (AFLIBERCEPT) (INJECTION) (AFLIBERCEPT) [Suspect]
     Indication: AGE-RELATED MACULAR DEGENERATION
     Dosage: INTRAVITREAL
  2. ATORVASTATIN(ATORVASTATIN) [Concomitant]
  3. LISINOPRIL(LISINOPRIL) [Concomitant]
  4. CARVEDILOL(CARVEDILOL) [Concomitant]
  5. CLOPIDOGREL(CLOPIDOGREL) [Concomitant]
  6. CETIRIZINE HCL(CETIRIZINE HYDROCHLORIDE) [Concomitant]
  7. FISH OIL(FISH OIL) [Concomitant]

REACTIONS (1)
  - Myocardial infarction [None]
